FAERS Safety Report 4414117-9 (Version None)
Quarter: 2004Q3

REPORT INFORMATION
  Report Type: 
  Country: None (occurrence: None)
  Receive Date: 20040803
  Receipt Date: 20040708
  Transmission Date: 20050211
  Serious: Yes (Congenital Anomaly)
  Sender: FDA-Public Use
  Company Number: US-BRISTOL-MYERS SQUIBB COMPANY-12636080

PATIENT
  Sex: Female
  Weight: 3 kg

DRUGS (5)
  1. VIDEX [Suspect]
     Route: 064
     Dates: start: 20040114, end: 20040130
  2. COMBIVIR [Suspect]
     Dosage: 600/300 MG ONGOING AT CONCEPTION
     Route: 064
     Dates: end: 20040113
  3. VIRAMUNE [Suspect]
     Dosage: ONGOING AT CONCEPTION
     Route: 064
     Dates: end: 20040113
  4. KALETRA [Suspect]
     Route: 064
     Dates: start: 20040114, end: 20040130
  5. VIREAD [Suspect]
     Route: 064
     Dates: start: 20040114, end: 20040130

REACTIONS (3)
  - CEREBELLAR HYPOPLASIA [None]
  - OPTIC NEUROPATHY [None]
  - PREGNANCY [None]
